APPROVED DRUG PRODUCT: ADENOCARD
Active Ingredient: ADENOSINE
Strength: 3MG/ML **Federal Register determination that product was not discontinued or withdrawn for safety or effectiveness reasons**
Dosage Form/Route: INJECTABLE;INJECTION
Application: N019937 | Product #002
Applicant: ASTELLAS PHARMA US INC
Approved: Oct 30, 1989 | RLD: Yes | RS: No | Type: DISCN